FAERS Safety Report 8147476-4 (Version None)
Quarter: 2012Q1

REPORT INFORMATION
  Report Type: 
  Country: None (occurrence: None)
  Receive Date: 20120218
  Receipt Date: 20110214
  Transmission Date: 20120608
  Serious: No
  Sender: FDA-Public Use
  Company Number: US-ALLERGAN-1102198US

PATIENT
  Age: 49 Year
  Sex: Female

DRUGS (3)
  1. BOTULINUM TOXIN TYPE A [Suspect]
     Indication: TORTICOLLIS
     Dosage: UNK
     Route: 030
     Dates: start: 20110124, end: 20110124
  2. MS CONTIN [Concomitant]
     Indication: PAIN
     Dosage: 60 MG, QAM
     Route: 048
  3. MS CONTIN [Concomitant]
     Dosage: 30 MG, QHS
     Route: 048

REACTIONS (3)
  - VISION BLURRED [None]
  - DRY EYE [None]
  - MUSCULAR WEAKNESS [None]
